FAERS Safety Report 9805250 (Version 3)
Quarter: 2014Q1

REPORT INFORMATION
  Report Type: Spontaneous
  Country: GB (occurrence: None)
  Receive Date: 20140106
  Receipt Date: 20140124
  Transmission Date: 20141002
  Serious: Yes (Other)
  Sender: FDA-Public Use
  Company Number: 2108823

PATIENT
  Age: 78 Year
  Sex: Female
  Weight: 75 kg

DRUGS (17)
  1. DEXMEDETOMIDINE HYDROCHLORIDE [Suspect]
     Indication: SEDATION
     Dates: start: 20131218, end: 20131222
  2. DEXMEDETOMIDINE HYDROCHLORIDE [Suspect]
     Indication: AGITATION
     Dates: start: 20131218, end: 20131222
  3. OMEPRAZOLE [Suspect]
     Indication: PRODUCT USED FOR UNKNOWN INDICATION
  4. ERYTHROMYCIN [Suspect]
     Indication: GASTROINTESTINAL MOTILITY DISORDER
     Dosage: 250 MG MILLIGRAM(S), UNKNOWN, UNKNOWN
     Dates: start: 20131216, end: 20131220
  5. BISOPROLOL [Suspect]
     Indication: PRODUCT USED FOR UNKNOWN INDICATION
     Dosage: 7.5 MG MILLIGRAM(S), UNKNOWN, UNKNOWN
  6. EXNOXAPARIN [Concomitant]
  7. FUROSEMIDE [Concomitant]
  8. PANTOPRAZOLE [Concomitant]
  9. CO-AMOXICLAV [Concomitant]
  10. PARACETAMOL [Concomitant]
  11. GABAPENTIN [Concomitant]
  12. PERINDOPRIL [Concomitant]
  13. RIVAROXABAN [Concomitant]
  14. LANSOPRAZOLE? [Concomitant]
  15. NORADRENALINE [Concomitant]
  16. PROPROFOL [Concomitant]
  17. REMIFENTANIL [Concomitant]

REACTIONS (6)
  - Drug interaction [None]
  - Aspartate aminotransferase abnormal [None]
  - Blood bilirubin abnormal [None]
  - Alanine aminotransferase abnormal [None]
  - Fall [None]
  - Rib fracture [None]
